FAERS Safety Report 6608188-9 (Version None)
Quarter: 2010Q1

REPORT INFORMATION
  Report Type: 
  Country: None (occurrence: None)
  Receive Date: 20100301
  Receipt Date: 20090911
  Transmission Date: 20100710
  Serious: Yes (Other)
  Sender: FDA-Public Use
  Company Number: A0807448A

PATIENT
  Age: 58 Year
  Sex: Male

DRUGS (6)
  1. ZIAGEN [Suspect]
     Indication: HIV INFECTION
     Dates: start: 20090707, end: 20090826
  2. INTELENCE [Suspect]
     Indication: HIV INFECTION
     Dates: start: 20090707, end: 20090824
  3. ISENTRESS [Suspect]
     Indication: HIV INFECTION
     Dates: start: 20090707, end: 20090826
  4. KALETRA [Concomitant]
     Dates: end: 20090707
  5. VIDEX [Concomitant]
     Dates: end: 20090707
  6. ZERIT [Concomitant]
     Dates: end: 20090707

REACTIONS (1)
  - RASH PRURITIC [None]
